FAERS Safety Report 4933501-8 (Version None)
Quarter: 2006Q1

REPORT INFORMATION
  Report Type: 
  Country: None (occurrence: None)
  Receive Date: 20060301
  Receipt Date: 20060220
  Transmission Date: 20060701
  Serious: Yes (Death)
  Sender: FDA-Public Use
  Company Number: 13543

PATIENT
  Age: 21 Year
  Sex: Male

DRUGS (14)
  1. ONCOVIN [Suspect]
     Indication: NON-HODGKIN'S LYMPHOMA
     Dosage: 2 MG ONCE IT
     Dates: start: 20050826, end: 20050826
  2. ONCOVIN [Suspect]
     Indication: T-CELL LYMPHOMA
     Dosage: 2 MG ONCE IT
     Dates: start: 20050826, end: 20050826
  3. CYTOXAN [Concomitant]
  4. MESNA [Concomitant]
  5. DEXAMETHASONE [Concomitant]
  6. DOXORUBICIN HCL [Concomitant]
  7. COLACE [Concomitant]
  8. ALLOPURINOL [Concomitant]
  9. CYCLOPHOSPHAMIDE [Concomitant]
  10. FUROSEMIDE [Concomitant]
  11. SODIUM POLYSTYRENE SULFONATE [Concomitant]
  12. NOVOLIN /00030501/ [Concomitant]
  13. DOLASETRON MESYLATE [Concomitant]
  14. LORAZEPAM [Concomitant]

REACTIONS (17)
  - BLOOD PRESSURE SYSTOLIC INCREASED [None]
  - BODY TEMPERATURE INCREASED [None]
  - CONFUSIONAL STATE [None]
  - CYANOSIS [None]
  - DRY SKIN [None]
  - GUILLAIN-BARRE SYNDROME [None]
  - HAEMATOCRIT DECREASED [None]
  - HEART RATE INCREASED [None]
  - LOSS OF CONSCIOUSNESS [None]
  - LUMBAR PUNCTURE HEADACHE [None]
  - NERVOUS SYSTEM DISORDER [None]
  - PARALYSIS FLACCID [None]
  - PLATELET COUNT DECREASED [None]
  - RESPIRATORY RATE INCREASED [None]
  - SKIN WARM [None]
  - WHITE BLOOD CELL COUNT DECREASED [None]
  - WRONG DRUG ADMINISTERED [None]
